FAERS Safety Report 5757821-2 (Version None)
Quarter: 2008Q2

REPORT INFORMATION
  Report Type: 
  Country: None (occurrence: None)
  Receive Date: 20080603
  Receipt Date: 20080526
  Transmission Date: 20081010
  Serious: Yes (Hospitalization)
  Sender: FDA-Public Use
  Company Number: PHHY2008FR09292

PATIENT
  Sex: Female

DRUGS (14)
  1. NITRODERM [Suspect]
     Dosage: 10MG/24HR
     Route: 062
  2. AMLOR [Interacting]
     Indication: ISCHAEMIC CARDIOMYOPATHY
     Dosage: UNK
     Route: 048
  3. AMLOR [Interacting]
     Dosage: UNK
  4. TRIATEC [Interacting]
     Indication: ISCHAEMIC CARDIOMYOPATHY
     Dosage: 10MG
     Route: 048
  5. TRIATEC [Interacting]
     Dosage: UNK
  6. LASILIX [Concomitant]
  7. TARDYFERON [Concomitant]
  8. IMOVANE [Concomitant]
  9. XANAX [Concomitant]
  10. PLAVIX [Concomitant]
  11. TOPALGIC LP [Concomitant]
  12. ACUPAN [Concomitant]
  13. CACIT B3 [Concomitant]
  14. DAFALGAN [Concomitant]

REACTIONS (4)
  - BLOOD PRESSURE DECREASED [None]
  - DRUG INTERACTION [None]
  - FALL [None]
  - ORTHOSTATIC HYPOTENSION [None]
